FAERS Safety Report 9041620 (Version 2)
Quarter: 2013Q2

REPORT INFORMATION
  Report Type: Report from Study
  Country: MX (occurrence: MX)
  Receive Date: 20130129
  Receipt Date: 20130624
  Transmission Date: 20140414
  Serious: No
  Sender: FDA-Public Use
  Company Number: MX-SANOFI-AVENTIS-2013SA004496

PATIENT
  Age: 34 Year
  Sex: Female

DRUGS (4)
  1. ARAVA [Suspect]
     Indication: RHEUMATOID ARTHRITIS
     Route: 048
     Dates: start: 2011, end: 20130117
  2. ARALEN [Suspect]
     Indication: RHEUMATOID ARTHRITIS
     Route: 048
     Dates: start: 2011, end: 201211
  3. METHOTREXATE [Suspect]
     Indication: RHEUMATOID ARTHRITIS
     Route: 048
     Dates: start: 2011, end: 201211
  4. ULTRASURE CONTRACEPTIVE SHEATH [Suspect]
     Indication: CONTRACEPTION
     Route: 023

REACTIONS (3)
  - Exposure during pregnancy [Unknown]
  - Inappropriate schedule of drug administration [Unknown]
  - Pregnancy [None]
